FAERS Safety Report 4901770-6 (Version None)
Quarter: 2006Q1

REPORT INFORMATION
  Report Type: 
  Country: None (occurrence: None)
  Receive Date: 20060201
  Receipt Date: 20060201
  Transmission Date: 20060701
  Serious: Yes (Hospitalization)
  Sender: FDA-Public Use
  Company Number: None

PATIENT
  Sex: Male
  Weight: 86.637 kg

DRUGS (3)
  1. GEODON [Suspect]
     Indication: HALLUCINATION, AUDITORY
     Dosage: 80MG PO BID
     Route: 048
     Dates: start: 20051024, end: 20051028
  2. FLUOXETINE [Concomitant]
  3. TRAZODONE [Concomitant]

REACTIONS (1)
  - PRIAPISM [None]
